FAERS Safety Report 9057330 (Version 1)
Quarter: 2013Q1

REPORT INFORMATION
  Report Type: Spontaneous
  Country: US (occurrence: US)
  Receive Date: 20130204
  Receipt Date: 20130204
  Transmission Date: 20140127
  Serious: Yes (Death, Hospitalization, Other)
  Sender: FDA-Public Use
  Company Number: US-PFIZER INC-2013042785

PATIENT
  Age: 88 Year
  Sex: Male
  Weight: 77.1 kg

DRUGS (3)
  1. CELEBREX [Suspect]
     Indication: OSTEOARTHRITIS
     Dosage: 200 MG,DAILY
     Dates: end: 2011
  2. ACETAMINOPHEN [Suspect]
     Indication: ARTHRITIS
     Dosage: 650 MG, UNK
  3. CEREFOLIN [Concomitant]
     Indication: DEMENTIA ALZHEIMER^S TYPE
     Dosage: 250 MG,DAILY

REACTIONS (3)
  - Dementia Alzheimer^s type [Fatal]
  - Convulsion [Not Recovered/Not Resolved]
  - Abasia [Not Recovered/Not Resolved]
